FAERS Safety Report 7658746-8 (Version None)
Quarter: 2011Q3

REPORT INFORMATION
  Report Type: 
  Country: None (occurrence: None)
  Receive Date: 20110805
  Receipt Date: 20110802
  Transmission Date: 20111222
  Serious: Yes (Other)
  Sender: FDA-Public Use
  Company Number: US-SANOFI-AVENTIS-2011SA035327

PATIENT
  Age: 81 Year
  Sex: Female
  Weight: 56 kg

DRUGS (19)
  1. IMURAN [Concomitant]
  2. MECLIZINE [Concomitant]
  3. LASIX [Concomitant]
  4. DIGOXIN [Concomitant]
  5. PROTONIX [Concomitant]
  6. PREDNISONE [Concomitant]
  7. MULTAQ [Suspect]
     Indication: ATRIAL FIBRILLATION
     Route: 048
     Dates: start: 20101117, end: 20110101
  8. TRAMADOL HCL [Concomitant]
     Indication: PAIN
     Dosage: 6 TIMES DAILY
  9. SYNTHROID [Concomitant]
     Dosage: .088
  10. LIPITOR [Concomitant]
  11. LOPRESSOR [Concomitant]
     Dates: start: 20101201
  12. ENALAPRIL MALEATE [Concomitant]
     Dates: start: 20010101
  13. PREMARIN [Concomitant]
  14. NOVOLIN R [Concomitant]
     Dosage: 3 UNITS IN AM, 7 UNITS IN PM
  15. TIZANIDINE HCL [Concomitant]
  16. NOVOLIN N [Concomitant]
     Dosage: 14 UNITS IN AM, 5 UNITS IN PM
  17. RESTASIS [Concomitant]
  18. COUMADIN [Concomitant]
  19. ALDACTONE [Concomitant]

REACTIONS (3)
  - HALLUCINATION [None]
  - WEIGHT DECREASED [None]
  - DIARRHOEA [None]
